FAERS Safety Report 9300875 (Version 1)
Quarter: 2013Q2

REPORT INFORMATION
  Report Type: Report from Study
  Country: BR (occurrence: BR)
  Receive Date: 20130521
  Receipt Date: 20130521
  Transmission Date: 20140414
  Serious: Yes (Other)
  Sender: FDA-Public Use
  Company Number: BR-ABBOTT-13P-020-1088953-00

PATIENT
  Age: 62 Year
  Sex: Female
  Weight: 110 kg

DRUGS (5)
  1. HUMIRA [Suspect]
     Indication: PSORIATIC ARTHROPATHY
     Route: 058
     Dates: start: 20101011, end: 201209
  2. FRONTAL [Concomitant]
     Indication: SLEEP DISORDER THERAPY
     Route: 048
  3. ANTIDEPRESSANTS [Concomitant]
     Indication: DEPRESSION
     Route: 048
  4. ARADOIS H [Concomitant]
     Indication: BLOOD PRESSURE
     Dosage: 100/50MG
     Route: 048
     Dates: start: 2008
  5. PURAN T4 [Concomitant]
     Indication: HYPOTHYROIDISM
     Route: 048

REACTIONS (6)
  - Cerebrovascular accident [Unknown]
  - Herpes zoster [Recovering/Resolving]
  - Immunosuppression [Unknown]
  - Osteoarthritis [Unknown]
  - Psoriatic arthropathy [Not Recovered/Not Resolved]
  - Nervousness [Unknown]
